FAERS Safety Report 26007563 (Version 1)
Quarter: 2025Q4

REPORT INFORMATION
  Report Type: Spontaneous
  Country: CN (occurrence: CN)
  Receive Date: 20251106
  Receipt Date: 20251106
  Transmission Date: 20260118
  Serious: Yes (Hospitalization)
  Sender: ELI LILLY AND COMPANY
  Company Number: CN-Merck Healthcare KGaA-2025054894

PATIENT
  Age: 51 Year
  Sex: Male
  Weight: 59 kg

DRUGS (6)
  1. ERBITUX [Suspect]
     Active Substance: CETUXIMAB
     Indication: Hypopharyngeal cancer
     Dosage: 700 MG, UNKNOWN
     Route: 041
     Dates: start: 20250905, end: 20250905
  2. NEDAPLATIN [Suspect]
     Active Substance: NEDAPLATIN
     Indication: Hypopharyngeal cancer
     Dosage: 135 MG, DAILY
     Route: 041
     Dates: start: 20250906, end: 20250906
  3. DOCETAXEL [Suspect]
     Active Substance: DOCETAXEL
     Indication: Hypopharyngeal cancer
     Dosage: 105 MG, DAILY
     Route: 041
     Dates: start: 20250906, end: 20250906
  4. SODIUM CHLORIDE [Concomitant]
     Active Substance: SODIUM CHLORIDE
     Indication: Product used for unknown indication
     Dosage: 500 ML, DAILY
     Route: 041
     Dates: start: 20250905, end: 20250905
  5. SODIUM CHLORIDE [Concomitant]
     Active Substance: SODIUM CHLORIDE
     Dosage: 500 ML, DAILY
     Route: 041
     Dates: start: 20250906, end: 20250906
  6. SODIUM CHLORIDE [Concomitant]
     Active Substance: SODIUM CHLORIDE
     Dosage: 250 ML, DAILY
     Route: 041
     Dates: start: 20250906, end: 20250906

REACTIONS (1)
  - Myelosuppression [Recovering/Resolving]

NARRATIVE: CASE EVENT DATE: 20250913
